FAERS Safety Report 8005807-X (Version None)
Quarter: 2011Q4

REPORT INFORMATION
  Report Type: 
  Country: None (occurrence: None)
  Receive Date: 20111223
  Receipt Date: 20111220
  Transmission Date: 20120403
  Serious: Yes (Death, Other)
  Sender: FDA-Public Use
  Company Number: SE-PFIZER INC-2011306450

PATIENT
  Age: 55 Year
  Sex: Male

DRUGS (3)
  1. LYRICA [Suspect]
     Indication: PAIN
  2. OXYCONTIN [Suspect]
     Dosage: UNK
  3. LYRICA [Suspect]
     Indication: ANXIETY
     Dosage: 300 MG, 2X/DAY

REACTIONS (2)
  - TOXICITY TO VARIOUS AGENTS [None]
  - DRUG DEPENDENCE [None]
